FAERS Safety Report 8607860-9 (Version None)
Quarter: 2012Q3

REPORT INFORMATION
  Report Type: 
  Country: None (occurrence: None)
  Receive Date: 20120821
  Receipt Date: 20120820
  Transmission Date: 20120928
  Serious: Yes (Death)
  Sender: FDA-Public Use
  Company Number: PHFR2012IE004156

PATIENT
  Sex: Female

DRUGS (2)
  1. CLOZARIL [Suspect]
     Indication: SCHIZOPHRENIA
     Dosage: 350 MG, UNK
     Route: 048
     Dates: start: 20010701
  2. STELAZINE [Concomitant]
     Indication: SCHIZOPHRENIA
     Dosage: 3 MG, UNK
     Route: 048

REACTIONS (1)
  - SUDDEN DEATH [None]
